FAERS Safety Report 25951581 (Version 1)
Quarter: 2025Q4

REPORT INFORMATION
  Report Type: Spontaneous
  Country: EU (occurrence: EU)
  Receive Date: 20251023
  Receipt Date: 20251023
  Transmission Date: 20260118
  Serious: Yes (Life-Threatening, Hospitalization, Other)
  Sender: MERCK SHARP & DOHME LLC
  Company Number: None

PATIENT
  Age: 60 Year
  Sex: Female
  Weight: 62 kg

DRUGS (2)
  1. ERTUGLIFLOZIN\SITAGLIPTIN [Suspect]
     Active Substance: ERTUGLIFLOZIN\SITAGLIPTIN
     Dosage: 5/100
     Route: 048
     Dates: end: 20241024
  2. DAPAGLIFLOZIN [Suspect]
     Active Substance: DAPAGLIFLOZIN
     Indication: Type 2 diabetes mellitus
     Dosage: 10 MG, QD
     Route: 048
     Dates: start: 20241021

REACTIONS (4)
  - Fournier^s gangrene [Not Recovered/Not Resolved]
  - Swelling [Unknown]
  - Confusional state [Unknown]
  - Disorientation [Unknown]

NARRATIVE: CASE EVENT DATE: 20250531
